FAERS Safety Report 13088104 (Version 4)
Quarter: 2018Q2

REPORT INFORMATION
  Report Type: Spontaneous
  Country: US (occurrence: US)
  Receive Date: 20170105
  Receipt Date: 20180622
  Transmission Date: 20180711
  Serious: No
  Sender: FDA-Public Use
  Company Number: US-GLAXOSMITHKLINE-US2016195261

PATIENT
  Sex: Female
  Weight: 53.61 kg

DRUGS (1)
  1. NUCALA [Suspect]
     Active Substance: MEPOLIZUMAB
     Indication: ASTHMA
     Dosage: 100 MG, CYC
     Route: 058
     Dates: start: 201611

REACTIONS (7)
  - Fatigue [Unknown]
  - Urinary tract infection [Unknown]
  - Pain in extremity [Unknown]
  - Asthma [Unknown]
  - Muscle spasms [Unknown]
  - Muscle spasms [Recovered/Resolved]
  - Headache [Unknown]
